FAERS Safety Report 23742188 (Version 2)
Quarter: 2024Q2

REPORT INFORMATION
  Report Type: Spontaneous
  Country: US (occurrence: US)
  Receive Date: 20240415
  Receipt Date: 20240628
  Transmission Date: 20240716
  Serious: Yes (Other)
  Sender: FDA-Public Use
  Company Number: US-ABBVIE-5719017

PATIENT
  Age: 73 Year
  Sex: Male

DRUGS (1)
  1. REFRESH RELIEVA PF [Suspect]
     Active Substance: CARBOXYMETHYLCELLULOSE SODIUM\GLYCERIN
     Indication: Dry eye
     Dosage: AT LEAST  A COUPLE DROPS EACH EYE, STRENGTH: 0.5 PERCENT
     Route: 047
     Dates: start: 20240411

REACTIONS (4)
  - Cataract [Unknown]
  - Lacrimation increased [Recovered/Resolved]
  - Eye disorder [Unknown]
  - Ocular hyperaemia [Recovered/Resolved]

NARRATIVE: CASE EVENT DATE: 20240401
